FAERS Safety Report 9781464 (Version 2)
Quarter: 2014Q1

REPORT INFORMATION
  Report Type: Spontaneous
  Country: JP (occurrence: JP)
  Receive Date: 20131224
  Receipt Date: 20140106
  Transmission Date: 20141002
  Serious: Yes (Hospitalization)
  Sender: FDA-Public Use
  Company Number: JP-BRISTOL-MYERS SQUIBB COMPANY-19934389

PATIENT
  Age: 40 Year
  Sex: Female

DRUGS (5)
  1. ABILIFY TABS [Suspect]
     Indication: SCHIZOPHRENIA
     Dosage: 12MG:05MAR13?24MG:07MA-NOV13?12MG:NOV-05DEC?6MG:06DE-12DE
     Route: 048
     Dates: start: 20130305, end: 20131212
  2. TEGRETOL [Suspect]
     Dosage: 800MG:13JN-04JL?600MG:05JL-29AU?400MG:30AU-24OC?200MG:25OC-NOV13
     Route: 048
     Dates: end: 201311
  3. TETRAMIDE [Concomitant]
     Dosage: TABLET
     Dates: start: 20130402
  4. EURODIN [Concomitant]
  5. ROHYPNOL [Concomitant]
     Dosage: TABLET

REACTIONS (2)
  - Pneumonia [Recovering/Resolving]
  - Hypogammaglobulinaemia [Recovering/Resolving]
